FAERS Safety Report 8453750-4 (Version None)
Quarter: 2012Q2

REPORT INFORMATION
  Report Type: 
  Country: None (occurrence: None)
  Receive Date: 20120620
  Receipt Date: 20120607
  Transmission Date: 20120825
  Serious: No
  Sender: FDA-Public Use
  Company Number: US-ASTRAZENECA-2012SE38594

PATIENT
  Age: 79 Year
  Sex: Female

DRUGS (11)
  1. SYMBICORT [Suspect]
     Dosage: UNKNOWN
     Route: 055
  2. CLONAZEPAM [Concomitant]
  3. REQUIP [Concomitant]
  4. LEVOTHYROXINE SODIUM [Concomitant]
  5. VICODIN [Concomitant]
  6. SPIRIVA [Concomitant]
  7. LIPITOR [Concomitant]
  8. AMLODIPINE BESYLATE [Concomitant]
  9. PLAVIX [Concomitant]
  10. TENORMIN [Concomitant]
  11. COMBIVENT [Concomitant]

REACTIONS (3)
  - COUGH [None]
  - ASTHMA [None]
  - DYSPNOEA [None]
